FAERS Safety Report 6184738-4 (Version None)
Quarter: 2009Q2

REPORT INFORMATION
  Report Type: 
  Country: None (occurrence: None)
  Receive Date: 20090508
  Receipt Date: 20090428
  Transmission Date: 20091009
  Serious: Yes (Hospitalization)
  Sender: FDA-Public Use
  Company Number: JP-PFIZER INC-2008065225

PATIENT
  Age: 43 Year

DRUGS (8)
  1. SILDENAFIL CITRATE [Suspect]
     Indication: PULMONARY HYPERTENSION
     Dosage: 20 MG, 2X/DAY
     Route: 048
     Dates: start: 20080710, end: 20080713
  2. MUCOSTA [Concomitant]
     Indication: GASTRIC ULCER
     Route: 048
  3. URSO 250 [Concomitant]
     Route: 048
  4. LIVACT [Concomitant]
     Route: 048
  5. BROTIZOLAM [Concomitant]
     Route: 048
  6. HALCION [Concomitant]
     Route: 048
  7. AMOBAN [Concomitant]
     Indication: INSOMNIA
     Dosage: UNK
     Route: 048
     Dates: start: 20080711, end: 20080713
  8. ROHYPNOL [Concomitant]
     Indication: INSOMNIA
     Dosage: 2 MG, 1X/DAY
     Route: 048
     Dates: start: 20080711, end: 20080713

REACTIONS (6)
  - ALANINE AMINOTRANSFERASE INCREASED [None]
  - ASPARTATE AMINOTRANSFERASE INCREASED [None]
  - MALAISE [None]
  - PRURITUS [None]
  - PYREXIA [None]
  - RASH [None]
